FAERS Safety Report 8973952 (Version 1)
Quarter: 2012Q4

REPORT INFORMATION
  Report Type: 
  Country: AU (occurrence: AU)
  Receive Date: 20121218
  Receipt Date: 20121218
  Transmission Date: 20130627
  Serious: Yes (Other)
  Sender: FDA-Public Use
  Company Number: PHHY2012AU115684

PATIENT
  Age: 77 Year
  Sex: Male

DRUGS (2)
  1. ACLASTA [Suspect]
     Dosage: 5 mg, UNK
     Route: 042
     Dates: start: 20101217
  2. ACLASTA [Suspect]
     Dosage: 5 mg,UNK
     Route: 042
     Dates: start: 20111214

REACTIONS (3)
  - Road traffic accident [Unknown]
  - Sternal fracture [Unknown]
  - Blood pressure abnormal [Unknown]
